FAERS Safety Report 9466113 (Version 1)
Quarter: 2013Q3

REPORT INFORMATION
  Report Type: Spontaneous
  Country: CH (occurrence: CH)
  Receive Date: 20130820
  Receipt Date: 20130820
  Transmission Date: 20140515
  Serious: Yes (Congenital Anomaly, Other)
  Sender: FDA-Public Use
  Company Number: PHHY2013CH088453

PATIENT
  Age: 8 Month
  Sex: Male
  Weight: 3.6 kg

DRUGS (1)
  1. RITALIN [Suspect]
     Dosage: UNK UKN, UNK
     Route: 064
     Dates: end: 20121001

REACTIONS (2)
  - Urinary tract malformation [Unknown]
  - Foetal exposure during pregnancy [Recovered/Resolved]
